FAERS Safety Report 4276753-2 (Version None)
Quarter: 2004Q1

REPORT INFORMATION
  Report Type: 
  Country: None (occurrence: None)
  Receive Date: 20040120
  Receipt Date: 20040107
  Transmission Date: 20041129
  Serious: Yes (Hospitalization)
  Sender: FDA-Public Use
  Company Number: 2004CG00046

PATIENT
  Age: 45 Year
  Sex: Male

DRUGS (4)
  1. IRESSA [Suspect]
     Indication: LUNG NEOPLASM MALIGNANT
     Dates: start: 20031001
  2. KETOPROFEN [Concomitant]
  3. MOPRAL [Concomitant]
  4. PRIMPERAN TAB [Concomitant]

REACTIONS (5)
  - MALIGNANT NEOPLASM PROGRESSION [None]
  - METASTASIS [None]
  - NECROSIS [None]
  - PNEUMOTHORAX [None]
  - RESPIRATORY DISTRESS [None]
